FAERS Safety Report 5039142-9 (Version None)
Quarter: 2006Q2

REPORT INFORMATION
  Report Type: 
  Country: None (occurrence: None)
  Receive Date: 20060629
  Receipt Date: 20060628
  Transmission Date: 20061013
  Serious: Yes (Hospitalization)
  Sender: FDA-Public Use
  Company Number: CA-GLAXOSMITHKLINE-A0610704A

PATIENT
  Age: 64 Year
  Sex: Male
  Weight: 133.2 kg

DRUGS (2)
  1. AVANDIA [Suspect]
     Indication: DRUG USE FOR UNKNOWN INDICATION
  2. METFORMIN [Concomitant]

REACTIONS (4)
  - COUGH [None]
  - FLUID RETENTION [None]
  - HYPERHIDROSIS [None]
  - WEIGHT DECREASED [None]
